FAERS Safety Report 4795853-1 (Version None)
Quarter: 2005Q4

REPORT INFORMATION
  Report Type: 
  Country: None (occurrence: None)
  Receive Date: 20051012
  Receipt Date: 20050926
  Transmission Date: 20060501
  Serious: Yes (Other)
  Sender: FDA-Public Use
  Company Number: CO-BOEHRINGER INGELHEIM PHARMACEUTICALS, INC.-2005-BP-17042CL

PATIENT
  Age: 19 Year
  Sex: Female

DRUGS (3)
  1. MOBIC [Suspect]
     Indication: ADVERSE EVENT
     Route: 048
     Dates: start: 20050822, end: 20050904
  2. ACETAMINOPHEN [Concomitant]
     Route: 048
     Dates: start: 20050822
  3. NIMESULIDE [Concomitant]
     Dates: start: 20050822, end: 20050903

REACTIONS (1)
  - POST PROCEDURAL HAEMORRHAGE [None]
